FAERS Safety Report 7152908-4 (Version None)
Quarter: 2010Q4

REPORT INFORMATION
  Report Type: 
  Country: None (occurrence: None)
  Receive Date: 20101213
  Receipt Date: 20101201
  Transmission Date: 20110411
  Serious: Yes (Death, Life-Threatening)
  Sender: FDA-Public Use
  Company Number: JP-GENZYME-THYM-1002153

PATIENT
  Sex: Male
  Weight: 23 kg

DRUGS (27)
  1. THYMOGLOBULIN [Suspect]
     Indication: GRAFT VERSUS HOST DISEASE
     Dosage: 25 MG, QD
     Route: 042
     Dates: start: 20100211, end: 20100211
  2. THYMOGLOBULIN [Suspect]
     Dosage: 25 MG, QD
     Route: 042
     Dates: start: 20100213, end: 20100213
  3. THYMOGLOBULIN [Suspect]
     Dosage: 25 MG, QD
     Route: 042
     Dates: start: 20100215, end: 20100215
  4. MEROPENEM TRIHYDRATE [Concomitant]
     Indication: PRODUCT USED FOR UNKNOWN INDICATION
     Dosage: UNK
     Dates: start: 20100116, end: 20100423
  5. AMPHOTERICIN B [Concomitant]
     Indication: PRODUCT USED FOR UNKNOWN INDICATION
     Dosage: UNK
     Dates: start: 20100121, end: 20100227
  6. ACICLOVIR [Concomitant]
     Indication: ANTIVIRAL PROPHYLAXIS
     Dosage: UNK
     Dates: start: 20100105, end: 20100306
  7. ACICLOVIR [Concomitant]
     Dosage: UNK
     Dates: start: 20100403, end: 20100427
  8. TACROLIMUS [Concomitant]
     Indication: PROPHYLAXIS AGAINST GRAFT VERSUS HOST DISEASE
     Dosage: UNK
     Dates: start: 20100111, end: 20100306
  9. TACROLIMUS [Concomitant]
     Indication: GRAFT VERSUS HOST DISEASE
  10. FENTANYL CITRATE [Concomitant]
     Indication: PRODUCT USED FOR UNKNOWN INDICATION
     Dosage: UNK
     Dates: start: 20100114, end: 20100427
  11. DOPAMINE HYDROCHLORIDE [Concomitant]
     Indication: PRODUCT USED FOR UNKNOWN INDICATION
     Dosage: UNK
     Dates: start: 20100127, end: 20100217
  12. METHYLPREDNISOLONE SODIUM SUCCINATE [Concomitant]
     Indication: GRAFT VERSUS HOST DISEASE
     Dosage: UNK
     Dates: start: 20100208, end: 20100302
  13. METHYLPREDNISOLONE SODIUM SUCCINATE [Concomitant]
     Dosage: UNK
     Dates: start: 20100313, end: 20100427
  14. OCTREOTIDE ACETATE [Concomitant]
     Indication: GRAFT VERSUS HOST DISEASE
     Dosage: UNK
     Dates: start: 20100215, end: 20100215
  15. OCTREOTIDE ACETATE [Concomitant]
     Dosage: UNK
     Dates: start: 20100306, end: 20100402
  16. LANSOPRAZOLE [Concomitant]
     Indication: PROPHYLAXIS AGAINST GASTROINTESTINAL ULCER
     Dosage: UNK
     Dates: start: 20100202, end: 20100304
  17. ALBUMIN (HUMAN) [Concomitant]
     Indication: HYPERPROTEINAEMIA
     Dosage: UNK
     Dates: start: 20100211, end: 20100328
  18. ANTITHROMBIN III HUMAN [Concomitant]
     Indication: ANTITHROMBIN III DECREASED
     Dosage: UNK
     Dates: start: 20100212, end: 20100426
  19. VANCOMYCIN HCL [Concomitant]
     Indication: ANTIBIOTIC PROPHYLAXIS
     Dosage: UNK
     Dates: start: 20100226, end: 20100424
  20. DEXAMETHASONE [Concomitant]
     Indication: NON-HODGKIN'S LYMPHOMA
     Dosage: UNK
     Dates: start: 20100310, end: 20100312
  21. DEXAMETHASONE [Concomitant]
     Indication: GRAFT VERSUS HOST DISEASE
  22. BETAMETHASONE SODIUM PHOSPHATE [Concomitant]
     Indication: GRAFT VERSUS HOST DISEASE
     Dosage: UNK
     Dates: start: 20100311, end: 20100316
  23. PREDNISOLONE SODIUM PHOSPHATE [Concomitant]
     Indication: GRAFT VERSUS HOST DISEASE
     Dosage: UNK
     Dates: start: 20100317, end: 20100404
  24. POLYETHYLENE GLYCOL TREATED HUMAN NORMAL IMMUNOGLOBULIN [Concomitant]
     Indication: PRODUCT USED FOR UNKNOWN INDICATION
     Dosage: UNK
     Dates: start: 20100104, end: 20100419
  25. METHOTREXATE [Concomitant]
     Indication: GRAFT VERSUS HOST DISEASE
     Dosage: UNK
     Dates: start: 20100315, end: 20100425
  26. MICAFUNGIN SODIUM [Concomitant]
     Indication: ANTIFUNGAL PROPHYLAXIS
     Dosage: UNK
     Dates: start: 20100228, end: 20100423
  27. FREEZE-DRIED ION-EXCHANGE RESIN [Concomitant]
     Indication: PRODUCT USED FOR UNKNOWN INDICATION
     Dosage: UNK
     Dates: start: 20100312, end: 20100314

REACTIONS (3)
  - FEBRILE NEUTROPENIA [None]
  - PRECURSOR T-LYMPHOBLASTIC LYMPHOMA/LEUKAEMIA RECURRENT [None]
  - REVERSIBLE POSTERIOR LEUKOENCEPHALOPATHY SYNDROME [None]
